FAERS Safety Report 6810875-4 (Version None)
Quarter: 2010Q2

REPORT INFORMATION
  Report Type: 
  Country: None (occurrence: None)
  Receive Date: 20100630
  Receipt Date: 20100621
  Transmission Date: 20101027
  Serious: Yes (Hospitalization)
  Sender: FDA-Public Use
  Company Number: DE-ABBOTT-10P-062-0653033-00

PATIENT
  Sex: Male

DRUGS (5)
  1. HUMIRA [Suspect]
     Indication: RHEUMATOID ARTHRITIS
     Route: 058
     Dates: start: 20070605
  2. METHYLPREDNISOLONE ACETATE [Concomitant]
     Indication: RHEUMATOID ARTHRITIS
  3. METHOTREXATE SODIUM [Concomitant]
     Indication: RHEUMATOID ARTHRITIS
     Dates: end: 20100501
  4. PANTOPRAZOL [Concomitant]
     Indication: DRUG USE FOR UNKNOWN INDICATION
  5. CALCIUM CARBONATE [Concomitant]
     Indication: DRUG USE FOR UNKNOWN INDICATION

REACTIONS (7)
  - GENERAL PHYSICAL HEALTH DETERIORATION [None]
  - INDURATION [None]
  - INFLAMMATION [None]
  - NEOPLASM [None]
  - NIGHT SWEATS [None]
  - PAIN [None]
  - WEIGHT DECREASED [None]
